FAERS Safety Report 8876789 (Version 1)
Quarter: 2012Q4

REPORT INFORMATION
  Report Type: 
  Country: US (occurrence: US)
  Receive Date: 20121023
  Receipt Date: 20121023
  Transmission Date: 20130627
  Serious: Yes (Other)
  Sender: FDA-Public Use
  Company Number: US-AMGEN-USASP2012050950

PATIENT
  Age: 59 Year
  Sex: Female

DRUGS (1)
  1. ENBREL [Suspect]
     Indication: RHEUMATOID ARTHRITIS
     Dosage: 50 mg, qwk
     Dates: start: 2005

REACTIONS (8)
  - Coccidioidomycosis [Recovering/Resolving]
  - Liver function test abnormal [Recovered/Resolved]
  - Foot operation [Recovered/Resolved]
  - Bunion operation [Recovered/Resolved]
  - Iritis [Recovering/Resolving]
  - Rheumatoid arthritis [Recovering/Resolving]
  - Vitamin D deficiency [Recovered/Resolved]
  - Anaemia [Recovered/Resolved]
